FAERS Safety Report 15228141 (Version 2)
Quarter: 2018Q3

REPORT INFORMATION
  Report Type: Spontaneous
  Country: GB (occurrence: GB)
  Receive Date: 20180801
  Receipt Date: 20180801
  Transmission Date: 20181010
  Serious: Yes (Death, Other)
  Sender: FDA-Public Use
  Company Number: PHHY2018GB056154

PATIENT
  Age: 46 Year
  Sex: Female

DRUGS (2)
  1. CICLOSPORIN [Suspect]
     Active Substance: CYCLOSPORINE
     Indication: TRANSPLANT
     Route: 065
  2. CICLOSPORIN [Suspect]
     Active Substance: CYCLOSPORINE
     Indication: IMMUNOSUPPRESSANT DRUG THERAPY

REACTIONS (13)
  - Cerebral infarction [Fatal]
  - Rash macular [Fatal]
  - Rash papular [Fatal]
  - Streptococcal sepsis [Fatal]
  - Bone marrow failure [Unknown]
  - Mucormycosis [Fatal]
  - Lymphocytosis [Fatal]
  - Graft versus host disease [Fatal]
  - Dermatitis [Fatal]
  - Neutropenia [Fatal]
  - Enterococcal sepsis [Fatal]
  - Multiple organ dysfunction syndrome [Fatal]
  - Cytopenia [Fatal]
